FAERS Safety Report 9870272 (Version 2)
Quarter: 2014Q1

REPORT INFORMATION
  Report Type: Spontaneous
  Country: US (occurrence: US)
  Receive Date: 20140205
  Receipt Date: 20140210
  Transmission Date: 20141002
  Serious: Yes (Death, Other)
  Sender: FDA-Public Use
  Company Number: US-009507513-1402USA000499

PATIENT
  Age: 44 Year
  Sex: Male

DRUGS (1)
  1. TEMODAR [Suspect]
     Route: 048

REACTIONS (2)
  - Death [Fatal]
  - Glioblastoma [Fatal]
